FAERS Safety Report 21759509 (Version 1)
Quarter: 2022Q4

REPORT INFORMATION
  Report Type: Other
  Country: None (occurrence: JP)
  Receive Date: 20221221
  Receipt Date: 20221221
  Transmission Date: 20230113
  Serious: Yes (Life-Threatening, Hospitalization, Other)
  Sender: FDA-Public Use
  Company Number: JP-ACI HealthCare Limited-2136030

PATIENT
  Age: 53 Year
  Sex: Female

DRUGS (6)
  1. SERTRALINE HYDROCHLORIDE [Suspect]
     Active Substance: SERTRALINE HYDROCHLORIDE
     Indication: Depression
     Route: 065
  2. PHENYTOIN [Suspect]
     Active Substance: PHENYTOIN
     Route: 065
  3. SULPIRIDE [Suspect]
     Active Substance: SULPIRIDE
     Route: 065
  4. ZONISAMIDE [Suspect]
     Active Substance: ZONISAMIDE
     Route: 065
  5. FOSPHENYTOIN SODIUM [Suspect]
     Active Substance: FOSPHENYTOIN SODIUM
     Route: 042
  6. LEVETIRACETAM [Concomitant]
     Active Substance: LEVETIRACETAM
     Route: 065

REACTIONS (4)
  - Electrocardiogram QT prolonged [Recovered/Resolved]
  - Electrocardiogram abnormal [Recovered/Resolved]
  - Cardio-respiratory arrest [Recovered/Resolved]
  - Drug interaction [Unknown]
